FAERS Safety Report 7725350-2 (Version None)
Quarter: 2011Q3

REPORT INFORMATION
  Report Type: 
  Country: None (occurrence: None)
  Receive Date: 20110829
  Receipt Date: 20110818
  Transmission Date: 20111222
  Serious: Yes (Death, Hospitalization, Other)
  Sender: FDA-Public Use
  Company Number: LEO-2011-00691

PATIENT
  Age: 64 Year
  Sex: Male

DRUGS (13)
  1. MOVICOL (SODIUM BICARBONATE, POTASSIUM CHLORIDE, SODIUM CHLORIDE, MACR [Concomitant]
  2. FIGITUMUMAB (FIGITUMUMAB) [Suspect]
     Indication: PROSTATE CANCER
     Dosage: 10 MG/KG, 1 IN 3 WK, INTRAVENOUS
     Route: 042
     Dates: start: 20080923, end: 20090127
  3. DIPROBASE CREAM (CETOSTEARYL ALCOHOL, PARAFIN, LIQUID, CETOMACROGOL, W [Concomitant]
  4. DOCETAXEL [Suspect]
     Indication: PROSTATE CANCER
     Dosage: 165 MG, 1 IN 3 WK, INTRAVENOUS
     Route: 042
     Dates: start: 20080722, end: 20090127
  5. VERAPAMIL [Concomitant]
  6. VALSARTAN [Concomitant]
  7. VENLAFAXIN (VENLAFAXINE HYDROCHLORIDE) [Concomitant]
  8. INNOHEP [Suspect]
     Indication: PULMONARY EMBOLISM
     Dosage: 16000 IU (16000 IU, 1 IN 1 D), SUBCUTANEOUS
     Route: 058
     Dates: start: 20081118, end: 20090213
  9. PREDNISOLONE [Suspect]
     Indication: PROSTATE CANCER
     Dosage: 10 MG (5 MG, 2 IN 1 D),
  10. ZOLADEX [Concomitant]
  11. ANTAZOLINE [Concomitant]
  12. ACETAMINOPHEN [Concomitant]
  13. OXYCONTIN [Concomitant]

REACTIONS (2)
  - EPISTAXIS [None]
  - UPPER GASTROINTESTINAL HAEMORRHAGE [None]
